FAERS Safety Report 19272012 (Version 1)
Quarter: 2021Q2

REPORT INFORMATION
  Report Type: Spontaneous
  Country: IR (occurrence: IR)
  Receive Date: 20210519
  Receipt Date: 20210519
  Transmission Date: 20210717
  Serious: Yes (Other)
  Sender: FDA-Public Use
  Company Number: IR-INGENUS PHARMACEUTICALS, LLC-2021INF000041

PATIENT
  Age: 28 Year
  Sex: Female

DRUGS (2)
  1. ARSENIC TRIOXIDE. [Suspect]
     Active Substance: ARSENIC TRIOXIDE
     Indication: ACUTE PROMYELOCYTIC LEUKAEMIA
     Dosage: 0.15
     Route: 042
  2. ALL?TRANS RETINOIC ACID [Suspect]
     Active Substance: TRETINOIN
     Indication: ACUTE PROMYELOCYTIC LEUKAEMIA
     Dosage: 45 MILLIGRAM/SQ. METER, QD
     Route: 048

REACTIONS (3)
  - Thrombocytosis [Recovering/Resolving]
  - Cerebral haemorrhage [Unknown]
  - Retinal haemorrhage [Unknown]
